FAERS Safety Report 16542718 (Version 8)
Quarter: 2021Q1

REPORT INFORMATION
  Report Type: Report from Study
  Country: US (occurrence: US)
  Receive Date: 20190709
  Receipt Date: 20210312
  Transmission Date: 20210419
  Serious: Yes (Death, Life-Threatening, Other)
  Sender: FDA-Public Use
  Company Number: PHHY2019US153459

PATIENT
  Age: 11 Year
  Sex: Male

DRUGS (4)
  1. KYMRIAH [Suspect]
     Active Substance: TISAGENLECLEUCEL
     Indication: B-CELL TYPE ACUTE LEUKAEMIA
     Dosage: ONCE/SINGLE
     Route: 041
     Dates: start: 20171120
  2. KYMRIAH [Suspect]
     Active Substance: TISAGENLECLEUCEL
     Dosage: ONCE/SINGLE
     Route: 041
     Dates: start: 20180904
  3. CYCLOPHOSPHAMIDE. [Concomitant]
     Active Substance: CYCLOPHOSPHAMIDE
     Indication: CHEMOTHERAPY
     Dosage: UNK
     Route: 065
  4. FLUDARABINE [Concomitant]
     Active Substance: FLUDARABINE PHOSPHATE
     Indication: CHEMOTHERAPY
     Dosage: UNK
     Route: 065

REACTIONS (26)
  - B-cell type acute leukaemia [Fatal]
  - Mental impairment [Unknown]
  - Staphylococcal infection [Unknown]
  - Malignant neoplasm progression [Fatal]
  - Leukoencephalopathy [Unknown]
  - Off label use [Unknown]
  - Thrombotic microangiopathy [Fatal]
  - Acute lymphocytic leukaemia recurrent [Unknown]
  - Haematocrit decreased [Unknown]
  - Muscle spasms [Unknown]
  - Haemoglobin decreased [Unknown]
  - Neutrophil count decreased [Unknown]
  - Neurotoxicity [Unknown]
  - Depressed level of consciousness [Unknown]
  - Respiratory failure [Unknown]
  - Multiple organ dysfunction syndrome [Unknown]
  - Neurotoxicity [Recovered/Resolved]
  - Adenovirus infection [Unknown]
  - Pulmonary haemorrhage [Unknown]
  - Hypogammaglobulinaemia [Recovered/Resolved]
  - Lymphocyte count decreased [Unknown]
  - Platelet count decreased [Recovered/Resolved]
  - Renal failure [Unknown]
  - Progressive multifocal leukoencephalopathy [Unknown]
  - Diplopia [Unknown]
  - Candida infection [Unknown]

NARRATIVE: CASE EVENT DATE: 20200629
